FAERS Safety Report 10380261 (Version 1)
Quarter: 2014Q3

REPORT INFORMATION
  Report Type: Spontaneous
  Country: US (occurrence: None)
  Receive Date: 20140811
  Receipt Date: 20140811
  Transmission Date: 20150326
  Serious: Yes (Other)
  Sender: FDA-Public Use
  Company Number: None

PATIENT
  Age: 51 Year
  Sex: Male
  Weight: 69.4 kg

DRUGS (1)
  1. BENZTROPINE [Suspect]
     Active Substance: BENZTROPINE
     Indication: TORTICOLLIS
     Dosage: 1 PILL ONCE DAILY TAKEN BY MOUTH
     Route: 048
     Dates: start: 20140205, end: 20140207

REACTIONS (1)
  - Dystonia [None]

NARRATIVE: CASE EVENT DATE: 20140205
